FAERS Safety Report 23461720 (Version 2)
Quarter: 2024Q2

REPORT INFORMATION
  Report Type: Other
  Country: IT (occurrence: None)
  Receive Date: 20240131
  Receipt Date: 20240410
  Transmission Date: 20240715
  Serious: Yes (Other)
  Sender: FDA-Public Use
  Company Number: None

PATIENT
  Age: 46 Year
  Sex: Male
  Weight: 70 kg

DRUGS (11)
  1. BEVACIZUMAB [Suspect]
     Active Substance: BEVACIZUMAB
     Indication: Cystoid macular oedema
     Dosage: 2ND INTRAVITREAL INJECTION: LEFT EYE
     Route: 050
     Dates: start: 20231012, end: 20231012
  2. BEVACIZUMAB [Suspect]
     Active Substance: BEVACIZUMAB
     Dosage: 4TH INTRAVITREAL INJECTION: LEFT EYE
     Route: 050
     Dates: start: 20231116, end: 20231116
  3. BEVACIZUMAB [Suspect]
     Active Substance: BEVACIZUMAB
     Dosage: 5TH INTRAVITREAL INJECTION: RIGHT EYE
     Route: 050
     Dates: start: 20231214, end: 20231214
  4. BEVACIZUMAB [Suspect]
     Active Substance: BEVACIZUMAB
     Dosage: 6TH INTRAVITREAL INJECTION: LEFT EYE
     Route: 050
     Dates: start: 20231227, end: 20231227
  5. BEVACIZUMAB [Suspect]
     Active Substance: BEVACIZUMAB
     Dosage: 1ST INTRAVITREAL INJECTION: RIGHT EYE
     Route: 050
     Dates: start: 20231005, end: 20231005
  6. BEVACIZUMAB [Suspect]
     Active Substance: BEVACIZUMAB
     Dosage: 3RD INTRAVITREAL INJECTION: RIGHT EYE
     Route: 050
     Dates: start: 20231109, end: 20231109
  7. ATORVASTATIN [Concomitant]
     Active Substance: ATORVASTATIN
     Indication: Hypercholesterolaemia
  8. RAMIPRIL [Concomitant]
     Active Substance: RAMIPRIL
  9. METFORMIN HYDROCHLORIDE [Concomitant]
     Active Substance: METFORMIN HYDROCHLORIDE
     Indication: Diabetes mellitus
  10. LANTUS [Concomitant]
     Active Substance: INSULIN GLARGINE
     Indication: Diabetes mellitus
  11. DAPAGLIFLOZIN [Concomitant]
     Active Substance: DAPAGLIFLOZIN
     Indication: Diabetes mellitus

REACTIONS (2)
  - Subretinal fluid [Not Recovered/Not Resolved]
  - Therapeutic product effect decreased [Not Recovered/Not Resolved]

NARRATIVE: CASE EVENT DATE: 20240104
